FAERS Safety Report 5420692-8 (Version None)
Quarter: 2007Q3

REPORT INFORMATION
  Report Type: 
  Country: None (occurrence: None)
  Receive Date: 20070816
  Receipt Date: 20070803
  Transmission Date: 20080115
  Serious: Yes (Hospitalization)
  Sender: FDA-Public Use
  Company Number: FABR-12107

PATIENT
  Age: 39 Year
  Sex: Male
  Weight: 66.3 kg

DRUGS (22)
  1. FABRAZYME [Suspect]
     Indication: FABRY'S DISEASE
     Dosage: 75 MG Q2WKS IV
     Route: 042
     Dates: start: 20030701
  2. COTRIM [Concomitant]
  3. VALCYTE [Concomitant]
  4. PANTOPRAZOLE SODIUM [Concomitant]
  5. FORLAX [Concomitant]
  6. TEGRETOL [Concomitant]
  7. MORPHINE SULFATE [Concomitant]
  8. MYFORTIC [Concomitant]
  9. HALOPERIDOL [Concomitant]
  10. CYCLOSPORINE [Concomitant]
  11. METHYLPREDNISOLONE [Concomitant]
  12. MUSARIL [Concomitant]
  13. FOLCUR [Concomitant]
  14. LYRICA [Concomitant]
  15. BATRAFEN [Concomitant]
  16. FUROSEMIDE [Concomitant]
  17. ALLOPURINOL [Concomitant]
  18. CLINDAMYCIN-CT [Concomitant]
  19. ATACAND [Concomitant]
  20. ASPIRIN [Concomitant]
  21. PREDNISOLONE [Concomitant]
  22. TEGRETOL [Concomitant]

REACTIONS (5)
  - BLOOD CREATININE INCREASED [None]
  - DIARRHOEA [None]
  - INFECTION [None]
  - INFLAMMATION [None]
  - SOMNOLENCE [None]
